FAERS Safety Report 7432230-9 (Version None)
Quarter: 2011Q2

REPORT INFORMATION
  Report Type: 
  Country: None (occurrence: None)
  Receive Date: 20110422
  Receipt Date: 20110406
  Transmission Date: 20111010
  Serious: No
  Sender: FDA-Public Use
  Company Number: US-B.I. PHARMACEUTICALS,INC./RIDGEFIELD-2011-BP-10192BP

PATIENT
  Sex: Female

DRUGS (5)
  1. ATENOLOL [Concomitant]
     Indication: TACHYCARDIA
     Dosage: 100 MG
  2. PRILOSEC [Concomitant]
     Indication: GASTROOESOPHAGEAL REFLUX DISEASE
  3. LORAZEPAM [Concomitant]
     Indication: ANXIETY
  4. TWYNSTA [Suspect]
     Indication: HYPERTENSION
     Route: 048
     Dates: start: 20110301
  5. NAPROXEN (ALEVE) [Concomitant]

REACTIONS (3)
  - SOMNOLENCE [None]
  - LYMPHADENOPATHY [None]
  - RASH [None]
